FAERS Safety Report 8319536-6 (Version None)
Quarter: 2012Q1

REPORT INFORMATION
  Report Type: 
  Country: None (occurrence: None)
  Receive Date: 20120315
  Receipt Date: 20110223
  Transmission Date: 20120608
  Serious: No
  Sender: FDA-Public Use
  Company Number: PHHY2011US05896

PATIENT
  Age: 39 Year
  Sex: Female
  Weight: 86 kg

DRUGS (5)
  1. GILENYA [Suspect]
     Indication: MULTIPLE SCLEROSIS
     Dosage: UNK, BID, ORAL
     Route: 048
     Dates: start: 20110117
  2. CALCIUM CARBONATE [Concomitant]
  3. AMLODIPINE [Concomitant]
  4. ESTER-C (CALCIUM ASCORBATE) [Concomitant]
  5. LAMISIL /00992601/ (TERBINAFINE) [Concomitant]

REACTIONS (2)
  - OVERDOSE [None]
  - ABNORMAL DREAMS [None]
